FAERS Safety Report 9729982 (Version 3)
Quarter: 2014Q1

REPORT INFORMATION
  Report Type: Report from Study
  Country: DE (occurrence: DE)
  Receive Date: 20131204
  Receipt Date: 20140203
  Transmission Date: 20141002
  Serious: Yes (Other)
  Sender: FDA-Public Use
  Company Number: PHHY2013DE019929

PATIENT
  Sex: Female
  Weight: 66 kg

DRUGS (5)
  1. EXTAVIA [Suspect]
     Indication: MULTIPLE SCLEROSIS
     Dosage: 250 UG, QOD
     Route: 058
     Dates: start: 200705, end: 20130220
  2. EXTAVIA [Suspect]
     Dosage: 1 ML, QOD
     Route: 058
     Dates: start: 20130902
  3. MAGNESIUM [Concomitant]
     Dosage: 300 MG, DAILY
     Route: 048
     Dates: start: 20130215
  4. VITAMIN D [Concomitant]
     Dosage: 2000 IU, DAILY
     Route: 048
     Dates: start: 20130204
  5. FEMIBION [Concomitant]
     Dosage: 01 DF, DAILY
     Route: 048
     Dates: start: 20130215

REACTIONS (4)
  - Pre-eclampsia [Unknown]
  - Pregnancy with contraceptive device [Unknown]
  - Normal newborn [Unknown]
  - Maternal exposure during pregnancy [Unknown]
